FAERS Safety Report 7540349-7 (Version None)
Quarter: 2011Q2

REPORT INFORMATION
  Report Type: 
  Country: None (occurrence: None)
  Receive Date: 20110610
  Receipt Date: 20110118
  Transmission Date: 20111010
  Serious: Yes (Other)
  Sender: FDA-Public Use
  Company Number: PHFR2011GB00862

PATIENT

DRUGS (7)
  1. CETIRIZINE HCL [Suspect]
     Dosage: 10 MG, QD
  2. MIRTAZAPINE [Suspect]
     Indication: DEPRESSION
     Dosage: UNK DF, UNK
  3. METFORMIN HCL [Suspect]
     Dosage: 1500 MG, QD
  4. ALLOPURINOL [Suspect]
     Dosage: 300 MG, QD
  5. DOXAZOSIN MESYLATE [Suspect]
     Dosage: 4 MG, QD
  6. COLCHICINE [Suspect]
     Dosage: 1 MG, QD
  7. VALSARTAN [Suspect]
     Dosage: 120 MG, QD

REACTIONS (1)
  - PANCREATITIS ACUTE [None]
